FAERS Safety Report 4269350-6 (Version None)
Quarter: 2004Q1

REPORT INFORMATION
  Report Type: 
  Country: None (occurrence: None)
  Receive Date: 20040108
  Receipt Date: 20031223
  Transmission Date: 20041129
  Serious: Yes (Hospitalization)
  Sender: FDA-Public Use
  Company Number: DSA_23778_2003

PATIENT
  Age: 75 Year
  Sex: Female

DRUGS (2)
  1. TEMESTA [Suspect]
     Dosage: 2.5 MG BID PO
     Route: 048
     Dates: end: 20030522
  2. LEXOMIL [Suspect]
     Dosage: 6 MG QD PO
     Route: 048
     Dates: end: 20030522

REACTIONS (4)
  - BALANCE DISORDER [None]
  - CEREBELLAR ATROPHY [None]
  - CEREBELLAR SYNDROME [None]
  - FALL [None]
